FAERS Safety Report 7389848-1 (Version None)
Quarter: 2011Q2

REPORT INFORMATION
  Report Type: 
  Country: None (occurrence: None)
  Receive Date: 20110401
  Receipt Date: 20101007
  Transmission Date: 20111010
  Serious: Yes (Hospitalization, Other)
  Sender: FDA-Public Use
  Company Number: US-BAYER-201019095NA

PATIENT
  Sex: Female
  Weight: 154.55 kg

DRUGS (12)
  1. TRAMADOL [Concomitant]
     Indication: PAIN
     Dates: start: 20020101, end: 20100101
  2. HYDROCODONE BITARTRATE [Concomitant]
     Indication: PAIN
     Dates: start: 20010101, end: 20100101
  3. BACLOFEN [Concomitant]
     Indication: MUSCLE SPASTICITY
     Dates: start: 20030101, end: 20100101
  4. ATENOLOL [Concomitant]
     Indication: HYPERTENSION
     Dates: start: 20010101, end: 20100101
  5. ACTOS [Concomitant]
     Indication: DIABETES MELLITUS
     Dates: start: 20050101, end: 20100101
  6. YAZ [Suspect]
     Indication: PAIN
     Route: 048
     Dates: start: 20060801, end: 20070701
  7. SULFAMETHOXAZOLE AND TRIMETHOPRIM [Concomitant]
     Indication: BACTERIAL INFECTION
     Dates: start: 20020101, end: 20100101
  8. MAXALT [Concomitant]
     Indication: MIGRAINE
     Dates: start: 20030101, end: 20100101
  9. ULTRAM [Concomitant]
     Dosage: UNK
  10. TRAZODONE HCL [Concomitant]
     Indication: DEPRESSION
     Dates: start: 20020101, end: 20100101
  11. RANITIDINE [Concomitant]
     Indication: GASTROOESOPHAGEAL REFLUX DISEASE
  12. RANITIDINE [Concomitant]
     Indication: DYSPEPSIA
     Dates: start: 20010101, end: 20100101

REACTIONS (4)
  - CHOLELITHIASIS [None]
  - ABDOMINAL PAIN [None]
  - CONVULSION [None]
  - CHOLECYSTITIS [None]
